FAERS Safety Report 4555968-X (Version None)
Quarter: 2005Q1

REPORT INFORMATION
  Report Type: 
  Country: None (occurrence: None)
  Receive Date: 20050119
  Receipt Date: 20050107
  Transmission Date: 20050727
  Serious: Yes (Death, Hospitalization)
  Sender: FDA-Public Use
  Company Number: JP-JNJFOC-20040104917

PATIENT
  Age: 68 Year
  Sex: Female

DRUGS (3)
  1. TAVANIC [Suspect]
     Indication: PNEUMONIA
     Dates: start: 20030101, end: 20030101
  2. DAFALGAN [Concomitant]
  3. HEPARIN [Concomitant]

REACTIONS (3)
  - PANCREATITIS ACUTE [None]
  - PNEUMONIA [None]
  - SEPTIC SHOCK [None]
